FAERS Safety Report 10028075 (Version 2)
Quarter: 2014Q2

REPORT INFORMATION
  Report Type: Spontaneous
  Country: US (occurrence: US)
  Receive Date: 20140321
  Receipt Date: 20140402
  Transmission Date: 20141212
  Serious: Yes (Other)
  Sender: FDA-Public Use
  Company Number: US-BAXTER-2014BAX013451

PATIENT
  Age: 59 Year
  Sex: Male

DRUGS (4)
  1. DIANEAL LOW CALCIUM [Suspect]
     Indication: PERITONEAL DIALYSIS
     Route: 033
     Dates: start: 2012, end: 20140215
  2. DIANEAL LOW CALCIUM [Suspect]
     Route: 033
     Dates: start: 20140220
  3. DIANEAL LOW CALCIUM [Suspect]
     Indication: PERITONEAL DIALYSIS
     Route: 033
     Dates: start: 2012, end: 20140215
  4. DIANEAL LOW CALCIUM [Suspect]
     Route: 033
     Dates: start: 20140220

REACTIONS (1)
  - Myocardial infarction [Recovering/Resolving]
